FAERS Safety Report 19521271 (Version 1)
Quarter: 2021Q3

REPORT INFORMATION
  Report Type: Spontaneous
  Country: IN (occurrence: IN)
  Receive Date: 20210712
  Receipt Date: 20210712
  Transmission Date: 20211014
  Serious: Yes (Death, Hospitalization, Other)
  Sender: FDA-Public Use
  Company Number: IN-SA-2021SA219160

PATIENT
  Age: 28 Year
  Sex: Female

DRUGS (3)
  1. ISONIAZID. [Concomitant]
     Active Substance: ISONIAZID
     Indication: PULMONARY TUBERCULOSIS
     Dosage: UNK
  2. PYRAZINAMIDE. [Concomitant]
     Active Substance: PYRAZINAMIDE
     Indication: PULMONARY TUBERCULOSIS
     Dosage: UNK
  3. RIFAMPICIN [Suspect]
     Active Substance: RIFAMPIN
     Indication: PULMONARY TUBERCULOSIS

REACTIONS (8)
  - Stevens-Johnson syndrome [Fatal]
  - Bullous haemorrhagic dermatosis [Fatal]
  - Skin erosion [Fatal]
  - Blister [Fatal]
  - Rash [Fatal]
  - Erythema multiforme [Fatal]
  - Scab [Fatal]
  - Skin reaction [Fatal]
